FAERS Safety Report 9251018 (Version 1)
Quarter: 2013Q2

REPORT INFORMATION
  Report Type: Spontaneous
  Country: NL (occurrence: NL)
  Receive Date: 20130424
  Receipt Date: 20130424
  Transmission Date: 20140414
  Serious: Yes (Hospitalization)
  Sender: FDA-Public Use
  Company Number: NL-PFIZER INC-2013126988

PATIENT
  Age: 88 Year
  Sex: Female

DRUGS (16)
  1. AMIODARONE HCL [Suspect]
     Indication: ATRIAL FIBRILLATION
     Dosage: 100 MG, DAILY
     Route: 048
     Dates: start: 2002, end: 20130403
  2. SPIRONOLACTONE [Concomitant]
     Dosage: UNK
  3. PIPRAM [Concomitant]
     Dosage: UNK
  4. METOCLOPRAMIDE [Concomitant]
     Dosage: UNK
  5. TOBRADEX [Concomitant]
     Dosage: UNK
  6. TOBRADEX [Concomitant]
     Dosage: UNK
  7. DORZOLAMIDE HYDROCHLORIDE/TIMOLOL MALEATE [Concomitant]
     Dosage: UNK
  8. SOTALOL [Concomitant]
     Dosage: UNK
  9. AMLODIPINE [Concomitant]
     Dosage: UNK
  10. OMEPRAZOLE [Concomitant]
     Dosage: UNK
  11. FUROSEMIDE [Concomitant]
     Dosage: UNK
  12. MARCOUMAR [Concomitant]
     Dosage: UNK
  13. ROSUVASTATIN [Concomitant]
     Dosage: UNK
  14. METFORMIN [Concomitant]
     Dosage: UNK
  15. GLIMEPIRIDE [Concomitant]
     Dosage: UNK
  16. VALSARTAN [Concomitant]
     Dosage: UNK

REACTIONS (3)
  - Hyperthyroidism [Recovering/Resolving]
  - Dehydration [Unknown]
  - Hyponatraemia [Unknown]
